FAERS Safety Report 24274190 (Version 1)
Quarter: 2024Q3

REPORT INFORMATION
  Report Type: Spontaneous
  Country: IR (occurrence: IR)
  Receive Date: 20240902
  Receipt Date: 20240902
  Transmission Date: 20241016
  Serious: Yes (Hospitalization)
  Sender: BAUSCH AND LOMB
  Company Number: IR-MLMSERVICE-20240821-PI169426-00039-1

PATIENT
  Age: 52 Year
  Sex: Female

DRUGS (3)
  1. ACYCLOVIR [Suspect]
     Active Substance: ACYCLOVIR
     Indication: Ophthalmic herpes zoster
     Route: 042
  2. METFORMIN [Concomitant]
     Active Substance: METFORMIN HYDROCHLORIDE
     Indication: Product used for unknown indication
     Dosage: 500MG THREE TIMES DAILY
     Route: 065
  3. ATORVASTATIN [Concomitant]
     Active Substance: ATORVASTATIN
     Indication: Product used for unknown indication
     Dosage: AT BEDTIME
     Route: 065

REACTIONS (4)
  - Confusional state [Recovered/Resolved]
  - Dysarthria [Recovered/Resolved]
  - Hallucinations, mixed [Recovered/Resolved]
  - Acute kidney injury [Recovered/Resolved]
